FAERS Safety Report 4772335-4 (Version None)
Quarter: 2005Q3

REPORT INFORMATION
  Report Type: 
  Country: None (occurrence: None)
  Receive Date: 20050919
  Receipt Date: 20050810
  Transmission Date: 20060218
  Serious: No
  Sender: FDA-Public Use
  Company Number: US-BRISTOL-MYERS SQUIBB COMPANY-13070768

PATIENT
  Age: 84 Year
  Sex: Male

DRUGS (1)
  1. TRIMOX [Suspect]
     Indication: ORAL INFECTION
     Route: 048

REACTIONS (4)
  - ABDOMINAL PAIN [None]
  - ATRIAL FIBRILLATION [None]
  - DIARRHOEA [None]
  - MITRAL VALVE INCOMPETENCE [None]
